FAERS Safety Report 8956736 (Version 1)
Quarter: 2012Q4

REPORT INFORMATION
  Report Type: 
  Country: US (occurrence: US)
  Receive Date: 20121210
  Receipt Date: 20121210
  Transmission Date: 20130627
  Serious: Yes (Other)
  Sender: FDA-Public Use
  Company Number: CHPA2012US024492

PATIENT
  Age: 53 Year
  Sex: Female

DRUGS (4)
  1. EXCEDRIN EXTRA STRENGTH [Suspect]
     Indication: INTERVERTEBRAL DISC DEGENERATION
     Dosage: 1 DF, 2 or 3 TIMES A DAY
     Route: 048
     Dates: end: 201201
  2. DRUG THERAPY NOS [Concomitant]
     Indication: DYSPNOEA
     Dosage: Unk, Unk
  3. DRUG THERAPY NOS [Concomitant]
     Dosage: Unk, Unk
  4. DRUG THERAPY NOS [Concomitant]
     Dosage: Unk, Unk

REACTIONS (7)
  - Bronchitis [Recovered/Resolved]
  - Increased bronchial secretion [Recovered/Resolved]
  - Hypersensitivity [Recovered/Resolved]
  - Cough [Recovered/Resolved]
  - Sneezing [Recovered/Resolved]
  - Off label use [Unknown]
  - Underdose [Unknown]
